FAERS Safety Report 16378045 (Version 2)
Quarter: 2019Q2

REPORT INFORMATION
  Report Type: Spontaneous
  Country: CN (occurrence: CN)
  Receive Date: 20190531
  Receipt Date: 20190619
  Transmission Date: 20190711
  Serious: Yes (Hospitalization)
  Sender: FDA-Public Use
  Company Number: CN-PFIZER INC-2019225945

PATIENT
  Age: 59 Year
  Sex: Male
  Weight: 54 kg

DRUGS (2)
  1. SULPERAZON [Suspect]
     Active Substance: CEFOPERAZONE SODIUM\SULBACTAM SODIUM
     Indication: INFECTION
     Dosage: 2 G, 3X/DAY (2 G+ 0.9% NS 100ML)
     Route: 041
     Dates: start: 20190504, end: 20190506
  2. MEPEM [Suspect]
     Active Substance: MEROPENEM
     Indication: INFECTION
     Dosage: 1 G, 3X/DAY (1G + 0.9% NS 100ML)
     Route: 041
     Dates: start: 20190504, end: 20190507

REACTIONS (2)
  - Drug hypersensitivity [Recovering/Resolving]
  - Drug eruption [Recovering/Resolving]

NARRATIVE: CASE EVENT DATE: 20190506
